FAERS Safety Report 9038851 (Version 3)
Quarter: 2013Q1

REPORT INFORMATION
  Report Type: Spontaneous
  Country: US (occurrence: US)
  Receive Date: 20130129
  Receipt Date: 20130308
  Transmission Date: 20140127
  Serious: Yes (Other)
  Sender: FDA-Public Use
  Company Number: US-PERRIGO-13US000608

PATIENT
  Age: 48 None
  Sex: Female
  Weight: 106.58 kg

DRUGS (4)
  1. MICONAZOLE NITRATE [Suspect]
     Indication: VULVOVAGINAL MYCOTIC INFECTION
     Dosage: ONE APPLICATORFUL, QD
     Route: 067
     Dates: start: 20130104, end: 20130106
  2. MICONAZOLE NITRATE [Suspect]
     Indication: VULVOVAGINAL BURNING SENSATION
     Route: 061
     Dates: start: 20130104, end: 20130106
  3. MICONAZOLE NITRATE [Suspect]
     Indication: VULVOVAGINAL PAIN
  4. DRUGS USED IN DIABETES [Concomitant]
     Indication: DIABETES MELLITUS
     Dosage: UNK
     Route: 065
     Dates: start: 2007

REACTIONS (7)
  - Chemical injury [Recovered/Resolved]
  - Application site haemorrhage [Recovered/Resolved]
  - Vulvovaginal pain [Recovering/Resolving]
  - Application site scab [Recovered/Resolved]
  - Vulvovaginal burning sensation [Recovered/Resolved]
  - Vulvovaginal pruritus [Recovered/Resolved]
  - Vulvovaginal discomfort [Recovering/Resolving]
